FAERS Safety Report 25312718 (Version 1)
Quarter: 2025Q2

REPORT INFORMATION
  Report Type: Spontaneous
  Country: CN (occurrence: CN)
  Receive Date: 20250514
  Receipt Date: 20250514
  Transmission Date: 20250717
  Serious: Yes (Hospitalization)
  Sender: RANBAXY
  Company Number: CN-SUN PHARMACEUTICAL INDUSTRIES LTD-2025R1-507127

PATIENT
  Sex: Male
  Weight: 2.34 kg

DRUGS (1)
  1. ASPIRIN [Suspect]
     Active Substance: ASPIRIN
     Indication: Pre-eclampsia
     Dosage: 100 MILLIGRAM, DAILY
     Route: 064

REACTIONS (3)
  - Low birth weight baby [Unknown]
  - Premature delivery [Unknown]
  - Foetal exposure during pregnancy [Unknown]
